FAERS Safety Report 15700008 (Version 1)
Quarter: 2018Q4

REPORT INFORMATION
  Report Type: Spontaneous
  Country: US (occurrence: US)
  Receive Date: 20181126
  Receipt Date: 20181126
  Transmission Date: 20190205
  Serious: No
  Sender: FDA-Public Use
  Company Number: None

PATIENT
  Age: 60 Year
  Sex: Female

DRUGS (1)
  1. CAPECITABINE 500MG ROXANE [Suspect]
     Active Substance: CAPECITABINE
     Indication: RECTAL CANCER
     Dosage: 4X500MG= 2000MG BID X14 D  THEN 7 OFF PO
     Route: 048
     Dates: start: 20180913

REACTIONS (1)
  - Nephropathy [None]

NARRATIVE: CASE EVENT DATE: 20181110
